FAERS Safety Report 6805271-X (Version None)
Quarter: 2010Q2

REPORT INFORMATION
  Report Type: 
  Country: None (occurrence: None)
  Receive Date: 20100628
  Receipt Date: 20071009
  Transmission Date: 20101027
  Serious: No
  Sender: FDA-Public Use
  Company Number: US-PFIZER INC-2007086830

PATIENT
  Sex: Male
  Weight: 86.4 kg

DRUGS (5)
  1. GEODON [Suspect]
     Indication: SCHIZOAFFECTIVE DISORDER
  2. DEPAKOTE [Suspect]
     Indication: CONVULSION
  3. COGENTIN [Concomitant]
  4. FERROUS SULFATE TAB [Concomitant]
  5. MULTI-VITAMINS [Concomitant]

REACTIONS (2)
  - ABNORMAL BEHAVIOUR [None]
  - NEUTROPHIL COUNT DECREASED [None]
